FAERS Safety Report 6171281-1 (Version None)
Quarter: 2009Q2

REPORT INFORMATION
  Report Type: 
  Country: None (occurrence: None)
  Receive Date: 20090428
  Receipt Date: 20090428
  Transmission Date: 20091009
  Serious: Yes (Hospitalization, Other)
  Sender: FDA-Public Use
  Company Number: None

PATIENT
  Age: 41 Year
  Sex: Male
  Weight: 81.6475 kg

DRUGS (1)
  1. SUBUTEX [Suspect]
     Indication: PAIN MANAGEMENT
     Dosage: .67 MG 3 TIMES A DAY SL
     Route: 060
     Dates: start: 20070601

REACTIONS (1)
  - GRAND MAL CONVULSION [None]
